FAERS Safety Report 4475040-7 (Version None)
Quarter: 2004Q3

REPORT INFORMATION
  Report Type: 
  Country: None (occurrence: None)
  Receive Date: 20040923
  Receipt Date: 20040809
  Transmission Date: 20050211
  Serious: No
  Sender: FDA-Public Use
  Company Number: USA040874947

PATIENT
  Age: 81 Year
  Sex: Female
  Weight: 65 kg

DRUGS (3)
  1. FORTEO [Suspect]
     Indication: OSTEOPOROSIS
     Dosage: 20 UG/ 1 DAY
     Dates: start: 20040201
  2. PREVACID [Concomitant]
  3. LEVOXYL (LEVOTHROXINE SODIUM) [Concomitant]

REACTIONS (2)
  - MUSCLE CRAMP [None]
  - WEIGHT INCREASED [None]
